FAERS Safety Report 16060340 (Version 1)
Quarter: 2019Q1

REPORT INFORMATION
  Report Type: Spontaneous
  Country: US (occurrence: US)
  Receive Date: 20190312
  Receipt Date: 20190312
  Transmission Date: 20190418
  Serious: No
  Sender: FDA-Public Use
  Company Number: US-AMGEN-USASP2019035658

PATIENT
  Age: 61 Year
  Sex: Female

DRUGS (1)
  1. REPATHA [Suspect]
     Active Substance: EVOLOCUMAB
     Indication: BLOOD CHOLESTEROL INCREASED
     Dosage: 140 MG, Q2WK
     Route: 065
     Dates: start: 2018

REACTIONS (7)
  - Abdominal pain upper [Unknown]
  - Wrong technique in product usage process [Unknown]
  - Oropharyngeal pain [Unknown]
  - Abdominal distension [Unknown]
  - Decreased appetite [Unknown]
  - Sinus disorder [Unknown]
  - Sneezing [Not Recovered/Not Resolved]

NARRATIVE: CASE EVENT DATE: 20190221
